FAERS Safety Report 8348855-2 (Version None)
Quarter: 2012Q2

REPORT INFORMATION
  Report Type: 
  Country: None (occurrence: None)
  Receive Date: 20120508
  Receipt Date: 20120426
  Transmission Date: 20120825
  Serious: Yes (Disabling)
  Sender: FDA-Public Use
  Company Number: 2012SP022609

PATIENT
  Age: 68 Year
  Sex: Male

DRUGS (3)
  1. VICTRELIS [Suspect]
     Indication: HEPATITIS C
     Dosage: 800 MG;Q8H; PO
     Route: 048
     Dates: start: 20120413, end: 20120423
  2. PEGASYS [Suspect]
     Indication: HEPATITIS C
     Dates: start: 20120307
  3. RIBASPHERE [Suspect]
     Indication: HEPATITIS C
     Dates: start: 20120307

REACTIONS (4)
  - FATIGUE [None]
  - SKIN EXFOLIATION [None]
  - ASTHENIA [None]
  - RASH GENERALISED [None]
